FAERS Safety Report 5767536-2 (Version None)
Quarter: 2008Q2

REPORT INFORMATION
  Report Type: 
  Country: None (occurrence: None)
  Receive Date: 20080612
  Receipt Date: 20080530
  Transmission Date: 20081010
  Serious: Yes (Hospitalization)
  Sender: FDA-Public Use
  Company Number: FR-JNJFOC-20080601859

PATIENT
  Sex: Female

DRUGS (15)
  1. TRAMADOL HCL [Suspect]
     Indication: DRUG USE FOR UNKNOWN INDICATION
     Route: 048
  2. PREVISCAN [Interacting]
     Indication: DRUG USE FOR UNKNOWN INDICATION
     Route: 048
  3. VOLTAREN [Suspect]
     Indication: DRUG USE FOR UNKNOWN INDICATION
     Route: 048
  4. DAFALGAN [Concomitant]
  5. DAFALGAN CODEINE [Concomitant]
  6. LEVOTHYROXINE SODIUM [Concomitant]
  7. ACULIX [Concomitant]
  8. AMLODIPINE [Concomitant]
  9. OMEPRAZOLE [Concomitant]
  10. TERICAN [Concomitant]
  11. GLICLAZIDE [Concomitant]
  12. STILNOX [Concomitant]
  13. CORTANCYL [Concomitant]
  14. MIOREL [Concomitant]
  15. TETRAZEPAM [Concomitant]

REACTIONS (4)
  - ANAEMIA [None]
  - DRUG INTERACTION [None]
  - INTERNATIONAL NORMALISED RATIO INCREASED [None]
  - MELAENA [None]
